FAERS Safety Report 12618720 (Version 1)
Quarter: 2016Q3

REPORT INFORMATION
  Report Type: Spontaneous
  Country: US (occurrence: US)
  Receive Date: 20160803
  Receipt Date: 20160803
  Transmission Date: 20161109
  Serious: No
  Sender: FDA-Public Use
  Company Number: US-BEH-2016071710

PATIENT
  Sex: Female
  Weight: 68.93 kg

DRUGS (21)
  1. BENADRYL [Concomitant]
     Active Substance: DIPHENHYDRAMINE HYDROCHLORIDE
  2. ZEMAIRA [Suspect]
     Active Substance: .ALPHA.1-PROTEINASE INHIBITOR HUMAN
     Indication: ALPHA-1 ANTI-TRYPSIN DEFICIENCY
     Dosage: AS DIRECTED
     Route: 042
     Dates: start: 20070427
  3. NORMAL SALINE [Concomitant]
     Active Substance: SODIUM CHLORIDE
  4. TRAMADOL. [Concomitant]
     Active Substance: TRAMADOL
  5. IMITREX [Concomitant]
     Active Substance: SUMATRIPTAN SUCCINATE
  6. GLUCAGON. [Concomitant]
     Active Substance: GLUCAGON
  7. LANTUS [Concomitant]
     Active Substance: INSULIN GLARGINE
  8. PREDNISONE. [Concomitant]
     Active Substance: PREDNISONE
  9. ADVIL (MEFENAMIC ACID) [Concomitant]
     Active Substance: MEFENAMIC ACID
  10. XOPENEX [Concomitant]
     Active Substance: LEVALBUTEROL HYDROCHLORIDE
  11. ESTRADIOL. [Concomitant]
     Active Substance: ESTRADIOL
  12. ATIVAN [Concomitant]
     Active Substance: LORAZEPAM
  13. LMX                                /00033401/ [Concomitant]
  14. EPIPEN [Concomitant]
     Active Substance: EPINEPHRINE
  15. ZOFRAN [Concomitant]
     Active Substance: ONDANSETRON HYDROCHLORIDE
  16. HUMALOG [Concomitant]
     Active Substance: INSULIN LISPRO
  17. LEVOTHROID [Concomitant]
     Active Substance: LEVOTHYROXINE SODIUM
  18. SODIUM CHLORIDE. [Concomitant]
     Active Substance: SODIUM CHLORIDE
  19. ASPIRIN. [Concomitant]
     Active Substance: ASPIRIN
  20. DIFLUCAN [Concomitant]
     Active Substance: FLUCONAZOLE
  21. DIPHENHYDRAMINE. [Concomitant]
     Active Substance: DIPHENHYDRAMINE

REACTIONS (1)
  - Influenza like illness [Unknown]
